FAERS Safety Report 6159866-X (Version None)
Quarter: 2009Q2

REPORT INFORMATION
  Report Type: 
  Country: None (occurrence: None)
  Receive Date: 20090420
  Receipt Date: 20090409
  Transmission Date: 20091009
  Serious: Yes (Hospitalization)
  Sender: FDA-Public Use
  Company Number: PHHO2009IT04698

PATIENT
  Sex: Female
  Weight: 108.5 kg

DRUGS (6)
  1. BLINDED NO TREATMENT RECEIVED NOMED [Suspect]
     Indication: GLUCOSE TOLERANCE IMPAIRED
     Dosage: DOUBLE BLIND
     Route: 048
  2. BLINDED PLACEBO PLACEBO [Suspect]
     Indication: GLUCOSE TOLERANCE IMPAIRED
     Dosage: DOUBLE BLIND
     Route: 048
  3. STARLIX [Suspect]
     Indication: GLUCOSE TOLERANCE IMPAIRED
     Dosage: DOUBLE BLIND
     Route: 048
  4. VALSARTAN [Suspect]
     Indication: CARDIOVASCULAR DISORDER
     Dosage: DOUBLE BLIND
     Route: 048
  5. ZANEDIP [Concomitant]
     Indication: HYPERTENSION
     Dosage: UNK
  6. MINITRAN [Concomitant]
     Indication: ISCHAEMIC CARDIOMYOPATHY
     Dosage: UNK

REACTIONS (1)
  - PULMONARY OEDEMA [None]
